FAERS Safety Report 18611717 (Version 3)
Quarter: 2020Q4

REPORT INFORMATION
  Report Type: Spontaneous
  Country: TR (occurrence: TR)
  Receive Date: 20201214
  Receipt Date: 20201229
  Transmission Date: 20210114
  Serious: Yes (Hospitalization, Disabling)
  Sender: FDA-Public Use
  Company Number: TR-ABBVIE-20K-161-3682949-00

PATIENT
  Age: 8 Year
  Sex: Female
  Weight: 50 kg

DRUGS (1)
  1. LUCRIN DEPOT [Suspect]
     Active Substance: LEUPROLIDE ACETATE
     Indication: PRECOCIOUS PUBERTY
     Route: 058
     Dates: start: 20200415, end: 20201019

REACTIONS (7)
  - Arterial thrombosis [Recovered/Resolved with Sequelae]
  - Aphasia [Recovered/Resolved]
  - Calculus urinary [Recovered/Resolved]
  - Joint dislocation [Recovered/Resolved]
  - Staring [Recovered/Resolved]
  - Cerebrovascular accident [Recovered/Resolved with Sequelae]
  - Syncope [Recovered/Resolved]

NARRATIVE: CASE EVENT DATE: 20201019
